FAERS Safety Report 8945240 (Version 4)
Quarter: 2013Q1

REPORT INFORMATION
  Report Type: Spontaneous
  Country: DE (occurrence: DE)
  Receive Date: 20121205
  Receipt Date: 20130205
  Transmission Date: 20140127
  Serious: Yes (Hospitalization)
  Sender: FDA-Public Use
  Company Number: DE-ALEXION PHARMACEUTICALS INC.-A201202283

PATIENT
  Age: 78 Year
  Sex: Male

DRUGS (2)
  1. SOLIRIS 300MG [Suspect]
     Indication: PAROXYSMAL NOCTURNAL HAEMOGLOBINURIA
     Dosage: UNK
     Route: 042
     Dates: start: 201111
  2. SOLIRIS 300MG [Suspect]
     Dosage: 900 MG, UNK
     Route: 042
     Dates: end: 20120926

REACTIONS (14)
  - Endocarditis staphylococcal [Recovered/Resolved]
  - Acute respiratory distress syndrome [Recovered/Resolved]
  - Renal failure [Recovered/Resolved]
  - Cardiac failure [Recovered/Resolved]
  - Cholangitis [Recovered/Resolved]
  - Delirium [Recovered/Resolved]
  - Aortic valve incompetence [Recovered/Resolved]
  - Atrial flutter [Recovered/Resolved]
  - Disseminated intravascular coagulation [Recovered/Resolved]
  - Neuromyopathy [Recovered/Resolved]
  - Cholecystitis acute [Recovered/Resolved]
  - Septic shock [Recovered/Resolved]
  - Pneumonia [Recovered/Resolved]
  - Sepsis [Recovered/Resolved]
